FAERS Safety Report 16935057 (Version 1)
Quarter: 2019Q4

REPORT INFORMATION
  Report Type: Spontaneous
  Country: US (occurrence: US)
  Receive Date: 20191018
  Receipt Date: 20191018
  Transmission Date: 20200122
  Serious: No
  Sender: FDA-Public Use
  Company Number: US-PFIZER INC-2019448754

PATIENT
  Age: 55 Year
  Sex: Female

DRUGS (9)
  1. BACLOFEN. [Concomitant]
     Active Substance: BACLOFEN
     Dosage: 10 MG, UNK
  2. DICLOFENAC SODIUM. [Concomitant]
     Active Substance: DICLOFENAC SODIUM
     Dosage: 75 MG, UNK
  3. VITAMIN D3 [Concomitant]
     Active Substance: CHOLECALCIFEROL
     Dosage: 10000 IU, UNK
  4. SERTRALINE HCL [Concomitant]
     Active Substance: SERTRALINE HYDROCHLORIDE
     Dosage: 50 MG, UNK
  5. SYNTHROID [Concomitant]
     Active Substance: LEVOTHYROXINE SODIUM
     Dosage: 175 UG, UNK
  6. HYDROCHLOROTHIAZIDE/LISINOPRIL [Concomitant]
     Dosage: UNK
  7. XELJANZ [Suspect]
     Active Substance: TOFACITINIB CITRATE
     Indication: PSORIATIC ARTHROPATHY
     Dosage: 5 MG, 2X/DAY
     Route: 048
     Dates: start: 20190617
  8. BIOTIN [Concomitant]
     Active Substance: BIOTIN
     Dosage: 1 MG, UNK
  9. VITAMIN D2 [Concomitant]
     Active Substance: ERGOCALCIFEROL
     Dosage: 50000 IU, UNK

REACTIONS (1)
  - Tooth infection [Unknown]
